FAERS Safety Report 15852766 (Version 2)
Quarter: 2019Q1

REPORT INFORMATION
  Report Type: Spontaneous
  Country: DE (occurrence: DE)
  Receive Date: 20190122
  Receipt Date: 20190205
  Transmission Date: 20190417
  Serious: Yes (Hospitalization, Other)
  Sender: FDA-Public Use
  Company Number: DE-AUROBINDO-AUR-APL-2018-052151

PATIENT

DRUGS (26)
  1. GABAPENTIN. [Suspect]
     Active Substance: GABAPENTIN
     Dosage: 900 MILLIGRAM, ONCE A DAY (300-300-300)
     Route: 065
  2. AMITRIPTYLINE HYDROCHLORIDE. [Suspect]
     Active Substance: AMITRIPTYLINE HYDROCHLORIDE
     Indication: TRIGEMINAL NEURALGIA
     Dosage: 20 MG, UNK
     Route: 065
  3. DEXKETOPROFEN [Concomitant]
     Active Substance: DEXKETOPROFEN
     Indication: POST HERPETIC NEURALGIA
     Dosage: UNK, FOR 60 MINUTES
     Route: 065
  4. LIDOCAINE SOLUTION FOR INJECTION [Suspect]
     Active Substance: LIDOCAINE
     Indication: TRIGEMINAL NEURALGIA
     Dosage: UNK
     Route: 065
  5. LIDOCAINE SOLUTION FOR INJECTION [Suspect]
     Active Substance: LIDOCAINE
     Indication: PAIN
  6. GABAPENTIN. [Suspect]
     Active Substance: GABAPENTIN
     Dosage: 600-300-300 MG (WEEK 17)
     Route: 065
  7. PREGABALIN. [Suspect]
     Active Substance: PREGABALIN
     Indication: POST HERPETIC NEURALGIA
  8. LIDOCAINE HYDROCHLORIDE. [Suspect]
     Active Substance: LIDOCAINE HYDROCHLORIDE
     Indication: TRIGEMINAL NEURALGIA
     Dosage: UNK UNK, UNK
     Route: 061
  9. ACICLOVIR [Suspect]
     Active Substance: ACYCLOVIR
     Indication: HERPES ZOSTER
     Dosage: UNK
     Route: 065
  10. GABAPENTIN. [Suspect]
     Active Substance: GABAPENTIN
     Indication: POST HERPETIC NEURALGIA
     Dosage: 1800 MILLIGRAM, ONCE A DAY
     Route: 065
  11. GABAPENTIN. [Suspect]
     Active Substance: GABAPENTIN
     Indication: PAIN
     Dosage: GABAPENTIN 300-300-300
     Route: 065
  12. HYDROMORPHONE [Suspect]
     Active Substance: HYDROMORPHONE
     Indication: TRIGEMINAL NEURALGIA
     Dosage: 4 MILLIGRAM, TWO TIMES A DAY (4 - 0 - 4 MG)
     Route: 065
  13. HYDROMORPHONE [Suspect]
     Active Substance: HYDROMORPHONE
     Indication: PAIN
  14. DEXAMETHASONE. [Concomitant]
     Active Substance: DEXAMETHASONE
     Indication: POST HERPETIC NEURALGIA
  15. GABAPENTIN. [Suspect]
     Active Substance: GABAPENTIN
     Indication: TRIGEMINAL NEURALGIA
     Dosage: INCREASED DOSE TO 2400 MILLIGRAM, ONCE A DAY
     Route: 065
  16. AMBROXOL [Suspect]
     Active Substance: AMBROXOL
     Indication: PAIN
     Dosage: 20 PERCENT, OINTMENT
     Route: 061
  17. AMITRIPTYLINE HYDROCHLORIDE. [Suspect]
     Active Substance: AMITRIPTYLINE HYDROCHLORIDE
     Indication: PAIN
     Dosage: 25 MILLIGRAM
     Route: 065
  18. TAPENTADOL HYDROCHLORIDE [Suspect]
     Active Substance: TAPENTADOL HYDROCHLORIDE
     Indication: PAIN
     Dosage: 150-150-200 MG
     Route: 065
  19. LIDOCAINE HYDROCHLORIDE. [Suspect]
     Active Substance: LIDOCAINE HYDROCHLORIDE
     Indication: PAIN
  20. OXCARBAZEPINE. [Suspect]
     Active Substance: OXCARBAZEPINE
     Indication: PAIN
     Dosage: 150 MILLIGRAM, TWO TIMES A DAY
     Route: 065
  21. PREGABALIN. [Suspect]
     Active Substance: PREGABALIN
     Indication: HERPES ZOSTER
     Dosage: 600 MILLIGRAM
     Route: 065
  22. AMITRIPTYLINE HYDROCHLORIDE. [Suspect]
     Active Substance: AMITRIPTYLINE HYDROCHLORIDE
     Dosage: AMITRIPTYLINE 10 DROPS (WEEK 8)
     Route: 065
  23. TAPENTADOL HYDROCHLORIDE [Suspect]
     Active Substance: TAPENTADOL HYDROCHLORIDE
     Indication: TRIGEMINAL NEURALGIA
     Dosage: 500 MILLIGRAM, ONCE A DAY
     Route: 065
  24. TAPENTADOL HYDROCHLORIDE [Suspect]
     Active Substance: TAPENTADOL HYDROCHLORIDE
     Indication: POST HERPETIC NEURALGIA
     Dosage: 100-100-200 MG (AFTER 8 MONTHS)
     Route: 065
  25. OXCARBAZEPINE. [Suspect]
     Active Substance: OXCARBAZEPINE
     Indication: TRIGEMINAL NEURALGIA
     Dosage: 600 MG, UNK, WEEK 8
     Route: 065
  26. DEXAMETHASONE. [Concomitant]
     Active Substance: DEXAMETHASONE
     Indication: PAIN
     Dosage: UNK
     Route: 065

REACTIONS (29)
  - Application site pain [Unknown]
  - Quality of life decreased [Unknown]
  - Blood creatinine increased [Unknown]
  - Sleep deficit [Recovered/Resolved]
  - Condition aggravated [Recovered/Resolved]
  - Atrial fibrillation [Unknown]
  - Post herpetic neuralgia [Unknown]
  - Off label use [Unknown]
  - Benign prostatic hyperplasia [Unknown]
  - Erythema [Unknown]
  - Insomnia [Recovered/Resolved]
  - Drug effect incomplete [Unknown]
  - Application site erythema [Unknown]
  - Glaucoma [Unknown]
  - Drug ineffective [Unknown]
  - Sleep apnoea syndrome [Recovered/Resolved]
  - Liver function test increased [Unknown]
  - Hypoaesthesia [Unknown]
  - Nasopharyngitis [Unknown]
  - Hyperaesthesia [Unknown]
  - Burning sensation [Unknown]
  - Drug eruption [Unknown]
  - Fatigue [Unknown]
  - Osteoarthritis [Unknown]
  - Confusional state [Unknown]
  - Fall [Unknown]
  - Constipation [Unknown]
  - Depression [Unknown]
  - Intentional product use issue [Unknown]
